FAERS Safety Report 8835936 (Version 3)
Quarter: 2013Q1

REPORT INFORMATION
  Report Type: Spontaneous
  Country: US (occurrence: US)
  Receive Date: 20121011
  Receipt Date: 20130110
  Transmission Date: 20140127
  Serious: Yes (Other)
  Sender: FDA-Public Use
  Company Number: US-NOVOPROD-361166

PATIENT
  Age: 72 Year
  Sex: Female
  Weight: 94.33 kg

DRUGS (4)
  1. NOVOLOG FLEXPEN [Suspect]
     Indication: TYPE 2 DIABETES MELLITUS
     Dosage: 38 U, QD IN AM, 31 U IN PM
     Route: 058
  2. NOVOLOG FLEXPEN [Suspect]
     Indication: TYPE 2 DIABETES MELLITUS
     Dosage: 80U, BID
     Route: 058
  3. HYDROCODONE [Concomitant]
     Indication: BACK PAIN
     Route: 048
  4. FUROSEMIDE [Concomitant]
     Indication: PRODUCT USED FOR UNKNOWN INDICATION
     Dosage: UNK
     Route: 048

REACTIONS (1)
  - Age-related macular degeneration [Not Recovered/Not Resolved]
